FAERS Safety Report 11516876 (Version 1)
Quarter: 2015Q3

REPORT INFORMATION
  Report Type: Spontaneous
  Country: US (occurrence: None)
  Receive Date: 20150916
  Receipt Date: 20150916
  Transmission Date: 20151125
  Serious: No
  Sender: FDA-Public Use
  Company Number: None

PATIENT
  Age: 49 Year
  Sex: Female
  Weight: 57.15 kg

DRUGS (7)
  1. SLOW FE IRON [Concomitant]
  2. ESCITALOPRAM [Concomitant]
     Active Substance: ESCITALOPRAM OXALATE
  3. OSTEO BI-FLEX [Concomitant]
     Active Substance: CHONDROITIN SULFATE A\GLUCOSAMINE
  4. MELOXICAM 15 MG CADILA HEALTHCARE, INDIA [Suspect]
     Active Substance: MELOXICAM
     Indication: ARTHRITIS
     Route: 048
     Dates: start: 20150813, end: 20150822
  5. DICYCLOMINE [Concomitant]
     Active Substance: DICYCLOMINE HYDROCHLORIDE
  6. GNC MULTI-VITAMINS [Concomitant]
  7. GNC OMEGA 3 [Concomitant]

REACTIONS (4)
  - Aphthous ulcer [None]
  - Gingival pain [None]
  - Haemorrhoidal haemorrhage [None]
  - Skin abrasion [None]

NARRATIVE: CASE EVENT DATE: 20150821
